FAERS Safety Report 23964833 (Version 6)
Quarter: 2025Q1

REPORT INFORMATION
  Report Type: Report from Study
  Country: BR (occurrence: BR)
  Receive Date: 20240612
  Receipt Date: 20250110
  Transmission Date: 20250409
  Serious: Yes (Hospitalization, Other)
  Sender: NOVARTIS
  Company Number: BR-002147023-NVSC2024BR055686

PATIENT
  Age: 54 Year
  Sex: Female

DRUGS (8)
  1. KISQALI [Suspect]
     Active Substance: RIBOCICLIB
     Indication: Breast cancer
     Route: 065
     Dates: start: 20240208
  2. KISQALI [Suspect]
     Active Substance: RIBOCICLIB
     Dosage: 3 DOSAGE FORM, QD
     Route: 065
     Dates: start: 20240216
  3. KISQALI [Suspect]
     Active Substance: RIBOCICLIB
     Dosage: 2 DOSAGE FORM, QD 2 TABLET ONCE A DAY
     Route: 065
  4. KISQALI [Suspect]
     Active Substance: RIBOCICLIB
     Dosage: 2 DOSAGE FORM, QD 2 TABLET ONCE A DAY (02 TABLETS A DAY)
     Route: 065
  5. KISQALI [Suspect]
     Active Substance: RIBOCICLIB
     Dosage: 2 DOSAGE FORM, QD
     Route: 065
  6. KISQALI [Suspect]
     Active Substance: RIBOCICLIB
     Dosage: 2 DOSAGE FORM, QD(2 TABLETS PER DAY)
     Route: 065
  7. KISQALI [Suspect]
     Active Substance: RIBOCICLIB
     Dosage: 2 DOSAGE FORM, QD(2 TABLETS PER DAY, FOR 21 DAYS WITH A PAUSE OF 7 DAYS)
     Route: 065
  8. KISQALI [Suspect]
     Active Substance: RIBOCICLIB
     Dosage: 2 DOSAGE FORM, QD (2 TABLETS PER DAY, FOR 21 DAYS WITH A PAUSE OF 7 DAYS)
     Route: 065

REACTIONS (16)
  - Accident at home [Recovering/Resolving]
  - Fall [Recovering/Resolving]
  - Wrist fracture [Recovering/Resolving]
  - Metastases to spine [Not Recovered/Not Resolved]
  - Retinal detachment [Recovering/Resolving]
  - Hypoacusis [Not Recovered/Not Resolved]
  - Productive cough [Not Recovered/Not Resolved]
  - Rhinitis [Unknown]
  - Cough [Unknown]
  - Speech disorder [Unknown]
  - Decreased immune responsiveness [Recovered/Resolved]
  - Decreased immune responsiveness [Recovering/Resolving]
  - Upper limb fracture [Recovering/Resolving]
  - Visual impairment [Recovering/Resolving]
  - Influenza [Recovering/Resolving]
  - Discouragement [Recovering/Resolving]

NARRATIVE: CASE EVENT DATE: 20240208
